FAERS Safety Report 9462811 (Version 3)
Quarter: 2014Q2

REPORT INFORMATION
  Report Type: Spontaneous
  Country: US (occurrence: US)
  Receive Date: 20130816
  Receipt Date: 20140619
  Transmission Date: 20141212
  Serious: Yes (Hospitalization, Other)
  Sender: FDA-Public Use
  Company Number: US-009507513-2011SP025678

PATIENT
  Sex: Female
  Weight: 59.88 kg

DRUGS (7)
  1. NUVARING [Suspect]
     Indication: CONTRACEPTION
     Dosage: UNK
     Route: 067
     Dates: start: 200704, end: 20080725
  2. NUVARING [Suspect]
     Indication: MENSTRUAL CYCLE MANAGEMENT
     Dosage: UNK
     Route: 067
     Dates: start: 20090107, end: 20090606
  3. OMEGA-3 MARINE TRIGLYCERIDES [Concomitant]
     Indication: NUTRITIONAL SUPPLEMENTATION
     Dates: start: 20090426, end: 20090605
  4. VITAMINS (UNSPECIFIED) [Concomitant]
     Indication: NUTRITIONAL SUPPLEMENTATION
     Dates: start: 20090426, end: 20090605
  5. MAGNESIUM SULFATE [Concomitant]
     Indication: NUTRITIONAL SUPPLEMENTATION
     Dates: start: 20090426, end: 20090605
  6. TIZANIDINE HYDROCHLORIDE [Concomitant]
     Indication: FIBROMYALGIA
     Dates: start: 20090426, end: 20090605
  7. FENTANYL [Concomitant]
     Indication: FIBROMYALGIA
     Dosage: EVERY 72 HOURS
     Route: 062
     Dates: start: 20090426, end: 20090605

REACTIONS (38)
  - VIIth nerve paralysis [Recovered/Resolved]
  - Pulmonary embolism [Unknown]
  - Deep vein thrombosis [Recovered/Resolved]
  - Tooth fracture [Unknown]
  - Chronic sinusitis [Unknown]
  - Mental disorder [Unknown]
  - Cognitive disorder [Unknown]
  - Emotional disorder [Unknown]
  - Tooth infection [Not Recovered/Not Resolved]
  - Appendix disorder [Unknown]
  - Paraesthesia [Unknown]
  - Muscle twitching [Unknown]
  - Musculoskeletal chest pain [Unknown]
  - Anticoagulation drug level below therapeutic [Unknown]
  - Nasal septum deviation [Unknown]
  - Viral infection [Unknown]
  - Drug interaction [Recovered/Resolved]
  - Hypercoagulation [Unknown]
  - Sinusitis [Unknown]
  - Pelvic pain [Not Recovered/Not Resolved]
  - Acne [Not Recovered/Not Resolved]
  - Weight increased [Unknown]
  - Viral infection [Recovered/Resolved]
  - Night sweats [Unknown]
  - Ear pain [Unknown]
  - Tinnitus [Unknown]
  - Neutropenia [Recovered/Resolved]
  - Lymphocytosis [Recovered/Resolved]
  - Autoimmune disorder [Unknown]
  - Sleep apnoea syndrome [Unknown]
  - Seasonal allergy [Unknown]
  - Nasal congestion [Unknown]
  - Fatigue [Unknown]
  - Maternal exposure before pregnancy [Unknown]
  - Abortion spontaneous [Unknown]
  - Hypotension [Unknown]
  - Drug hypersensitivity [Unknown]
  - Rash [Unknown]
